FAERS Safety Report 18181128 (Version 1)
Quarter: 2020Q3

REPORT INFORMATION
  Report Type: Spontaneous
  Country: DE (occurrence: DE)
  Receive Date: 20200821
  Receipt Date: 20200821
  Transmission Date: 20201103
  Serious: Yes (Hospitalization)
  Sender: FDA-Public Use
  Company Number: DE-TEVA-2020-DE-1815703

PATIENT
  Age: 93 Year
  Sex: Male

DRUGS (10)
  1. IBUPROFEN. [Suspect]
     Active Substance: IBUPROFEN
     Dosage: 2 DOSAGE FORMS DAILY; 1?1?0?0
     Route: 048
  2. METAMIZOLE [Suspect]
     Active Substance: METAMIZOLE
     Dosage: 1000 MILLIGRAM DAILY; 1?1?0?0
     Route: 048
  3. DEKRISTOL 20000I.E. [Concomitant]
     Dosage: 20,000 IU / WEEK
     Route: 048
  4. CLOPIDOGREL [Concomitant]
     Active Substance: CLOPIDOGREL BISULFATE
     Dosage: 75 MILLIGRAM DAILY; 0?1?0?0
     Route: 048
  5. PREGABALIN. [Concomitant]
     Active Substance: PREGABALIN
     Dosage: 8 DOSAGE FORMS DAILY; 25 MG, 4?0?4?0
     Route: 048
  6. LEVOTHYROXIN?NATRIUM [Concomitant]
     Active Substance: LEVOTHYROXINE SODIUM
     Dosage: 100 MICROGRAM DAILY; 1?0?0?0
     Route: 048
  7. SAB SIMPLEX 69,19MG [Concomitant]
     Dosage: 120 GTT DAILY;  40?40?40?0, DROPS
     Route: 048
  8. AMITRIPTYLIN [Concomitant]
     Active Substance: AMITRIPTYLINE
     Dosage: 10 MILLIGRAM DAILY; AT NIGHT
     Route: 048
  9. SIMVASTATIN. [Concomitant]
     Active Substance: SIMVASTATIN
     Dosage: 40 MILLIGRAM DAILY; 0?0?1?0
     Route: 048
  10. ESOMEPRAZOL [Concomitant]
     Active Substance: ESOMEPRAZOLE
     Dosage: 40 MILLIGRAM DAILY; 1?0?1?0
     Route: 048

REACTIONS (2)
  - Headache [Recovering/Resolving]
  - Tension headache [Recovering/Resolving]

NARRATIVE: CASE EVENT DATE: 202006
